FAERS Safety Report 25033289 (Version 2)
Quarter: 2025Q3

REPORT INFORMATION
  Report Type: Report from Study
  Country: US (occurrence: US)
  Receive Date: 20250303
  Receipt Date: 20250810
  Transmission Date: 20251021
  Serious: Yes (Other)
  Sender: ALEXION PHARMACEUTICALS
  Company Number: US-ASTRAZENECA-202502USA025122US

PATIENT
  Age: 16 Year
  Sex: Female

DRUGS (1)
  1. STRENSIQ [Suspect]
     Active Substance: ASFOTASE ALFA
     Indication: Phosphorus metabolism disorder
     Dosage: 138 MILLIGRAM, TIW
     Route: 065

REACTIONS (5)
  - Impaired gastric emptying [Unknown]
  - Injection site pain [Unknown]
  - Aspartate aminotransferase decreased [Unknown]
  - Blood insulin increased [Unknown]
  - Vitamin D decreased [Unknown]

NARRATIVE: CASE EVENT DATE: 20240601
